FAERS Safety Report 6423776-0 (Version None)
Quarter: 2009Q4

REPORT INFORMATION
  Report Type: 
  Country: None (occurrence: None)
  Receive Date: 20091102
  Receipt Date: 20091023
  Transmission Date: 20100525
  Serious: Yes (Hospitalization)
  Sender: FDA-Public Use
  Company Number: MY-JNJFOC-20090203341

PATIENT
  Sex: Female
  Weight: 40 kg

DRUGS (22)
  1. GOLIMUMAB [Suspect]
     Route: 058
  2. GOLIMUMAB [Suspect]
     Route: 058
  3. GOLIMUMAB [Suspect]
     Route: 058
  4. GOLIMUMAB [Suspect]
     Indication: RHEUMATOID ARTHRITIS
     Route: 058
  5. GOLIMUMAB [Suspect]
     Route: 042
  6. GOLIMUMAB [Suspect]
     Route: 042
  7. GOLIMUMAB [Suspect]
     Route: 042
  8. GOLIMUMAB [Suspect]
     Route: 042
  9. GOLIMUMAB [Suspect]
     Route: 042
  10. GOLIMUMAB [Suspect]
     Route: 042
  11. GOLIMUMAB [Suspect]
     Route: 042
  12. GOLIMUMAB [Suspect]
     Route: 042
  13. PLACEBO [Suspect]
     Indication: RHEUMATOID ARTHRITIS
     Dosage: WEEK 16
     Route: 042
  14. METHOTREXATE [Suspect]
     Indication: RHEUMATOID ARTHRITIS
     Route: 048
  15. PLACEBO [Suspect]
     Route: 048
  16. BACTROBAN [Concomitant]
     Route: 061
  17. CALCIUM LACTATE [Concomitant]
     Indication: PROPHYLAXIS
     Route: 048
  18. FOLIC ACID [Concomitant]
     Indication: RHEUMATOID ARTHRITIS
     Route: 048
  19. MELOXICAM [Concomitant]
     Indication: RHEUMATOID ARTHRITIS
     Route: 048
  20. MULTI-VITAMIN [Concomitant]
     Indication: RHEUMATOID ARTHRITIS
     Route: 048
  21. ACETAMINOPHEN [Concomitant]
     Indication: RHEUMATOID ARTHRITIS
     Route: 048
  22. PREDNISOLONE [Concomitant]
     Indication: RHEUMATOID ARTHRITIS
     Route: 048

REACTIONS (1)
  - UPPER RESPIRATORY TRACT INFECTION [None]
